FAERS Safety Report 6477646-2 (Version None)
Quarter: 2009Q4

REPORT INFORMATION
  Report Type: 
  Country: None (occurrence: None)
  Receive Date: 20091207
  Receipt Date: 20091105
  Transmission Date: 20100525
  Serious: No
  Sender: FDA-Public Use
  Company Number: US-BAYER-200938674NA

PATIENT
  Age: 43 Year
  Sex: Male
  Weight: 86 kg

DRUGS (1)
  1. ULTRAVIST 240 [Suspect]
     Indication: UROGRAM
     Dosage: TOTAL DAILY DOSE: 200 ML  UNIT DOSE: 200 ML
     Route: 042
     Dates: start: 20091105, end: 20091105

REACTIONS (2)
  - ERYTHEMA [None]
  - URTICARIA [None]
